FAERS Safety Report 6287182-4 (Version None)
Quarter: 2009Q3

REPORT INFORMATION
  Report Type: 
  Country: None (occurrence: None)
  Receive Date: 20090728
  Receipt Date: 20090722
  Transmission Date: 20100115
  Serious: Yes (Other)
  Sender: FDA-Public Use
  Company Number: ZA-ABBOTT-09P-143-0585644-00

PATIENT
  Sex: Male
  Weight: 85 kg

DRUGS (6)
  1. KLACID XL TABLETS [Suspect]
     Indication: SINUSITIS
     Route: 048
     Dates: start: 20090715, end: 20090716
  2. KLACID XL TABLETS [Suspect]
     Indication: BRONCHITIS
  3. ACETYLCYSTEINE [Concomitant]
     Indication: SINUSITIS
     Route: 048
  4. ACETYLCYSTEINE [Concomitant]
     Indication: BRONCHITIS
  5. PREDNISONE [Concomitant]
     Indication: SINUSITIS
     Route: 048
  6. PREDNISONE [Concomitant]
     Indication: BRONCHITIS

REACTIONS (1)
  - MEASLES [None]
